FAERS Safety Report 9028830 (Version 2)
Quarter: 2013Q1

REPORT INFORMATION
  Report Type: Spontaneous
  Country: IT (occurrence: IT)
  Receive Date: 20130124
  Receipt Date: 20130217
  Transmission Date: 20140127
  Serious: Yes (Hospitalization)
  Sender: FDA-Public Use
  Company Number: IT-BRISTOL-MYERS SQUIBB COMPANY-17311473

PATIENT
  Age: 78 Year
  Sex: Female

DRUGS (5)
  1. COUMADIN TABS 5 MG [Suspect]
     Route: 048
     Dates: start: 20120101, end: 20121011
  2. SIMVASTATIN [Concomitant]
  3. VERAPAMIL HCL [Concomitant]
  4. LANOXIN [Concomitant]
     Dosage: TABS
  5. OLMESARTAN MEDOXOMIL + HCTZ [Concomitant]
     Dosage: 1DF: 20/25 MG TABLETS

REACTIONS (2)
  - Cerebral haemorrhage [Unknown]
  - Blood pressure increased [Unknown]
